FAERS Safety Report 7074295-2 (Version None)
Quarter: 2010Q4

REPORT INFORMATION
  Report Type: 
  Country: None (occurrence: None)
  Receive Date: 20101029
  Receipt Date: 20101021
  Transmission Date: 20110411
  Serious: Yes (Other)
  Sender: FDA-Public Use
  Company Number: US-PFIZER INC-2010136532

PATIENT
  Sex: Male

DRUGS (4)
  1. ATORVASTATIN CALCIUM [Suspect]
     Dosage: UNK
  2. ALLOPURINOL [Suspect]
     Dosage: UNK
  3. ZOLPIDEM [Suspect]
     Dosage: UNK
  4. OXYCODONE AND ACETAMINOPHEN [Suspect]
     Dosage: UNK

REACTIONS (1)
  - BLOOD DISORDER [None]
